FAERS Safety Report 24313982 (Version 1)
Quarter: 2024Q3

REPORT INFORMATION
  Report Type: Other
  Country: US (occurrence: US)
  Receive Date: 20240912
  Receipt Date: 20240912
  Transmission Date: 20241017
  Serious: Yes (Hospitalization)
  Sender: SIGMA TAU
  Company Number: US-LEADIANT GMBH-2024LBI000157

PATIENT
  Sex: Male

DRUGS (1)
  1. MATULANE [Suspect]
     Active Substance: PROCARBAZINE HYDROCHLORIDE
     Indication: Brain neoplasm malignant
     Dosage: 50 MILLIGRAMS, 2 CAPSULES (100MG TOTAL) AT BEDTIME STARTING ON DAY 8 FOR 8 DAYS, THEN 50 MILLIGRAM,
     Route: 048
     Dates: start: 20230713

REACTIONS (1)
  - Platelet count decreased [Unknown]
